FAERS Safety Report 7534343-X (Version None)
Quarter: 2011Q2

REPORT INFORMATION
  Report Type: 
  Country: None (occurrence: None)
  Receive Date: 20110608
  Receipt Date: 20110520
  Transmission Date: 20111010
  Serious: No
  Sender: FDA-Public Use
  Company Number: US-AMGEN-USASP2011025806

PATIENT
  Age: 61 Year
  Sex: Female
  Weight: 84.807 kg

DRUGS (15)
  1. LASIX [Concomitant]
     Dosage: 20 MG, QD
     Dates: start: 20050712
  2. LEVOTHYROXINE SODIUM [Concomitant]
     Dosage: 150 A?G, QD
     Dates: start: 20050712
  3. CELEBREX [Concomitant]
     Dosage: 200 MG, QD
     Dates: start: 20050712
  4. PREMARIN [Concomitant]
     Dosage: UNK
     Dates: start: 20070917
  5. BENTYL [Concomitant]
     Dosage: 10 MG, QID
     Dates: start: 20070917
  6. DITROPAN [Concomitant]
     Dosage: 5 MG, QD
     Dates: start: 20050712
  7. ASPIRIN [Concomitant]
     Dosage: 325 MG, QD
     Dates: start: 20050712
  8. CYANOCOBALAMIN [Concomitant]
     Dosage: 1 ML, Q2WK
     Dates: start: 20070917
  9. DILAUDID [Concomitant]
     Dosage: UNK
     Dates: start: 20080125
  10. FLONASE [Concomitant]
     Dosage: 50 A?G, UNK
     Dates: start: 20050712
  11. EFFEXOR [Concomitant]
     Dosage: UNK
     Dates: start: 20060719
  12. ESTRADIOL [Concomitant]
     Dosage: 0.5 MG, QD
     Dates: start: 20070105
  13. MORPHINE SULFATE [Concomitant]
     Dosage: UNK
     Dates: start: 20080125
  14. METHYLIN [Concomitant]
     Dosage: 10 MG, BID
     Dates: start: 20080301
  15. PROLIA [Suspect]
     Indication: OSTEOPOROSIS POSTMENOPAUSAL
     Dosage: 60 MG, Q6MO
     Dates: start: 20101104

REACTIONS (1)
  - INCORRECT DOSE ADMINISTERED [None]
